FAERS Safety Report 22968260 (Version 4)
Quarter: 2023Q4

REPORT INFORMATION
  Report Type: Spontaneous
  Country: US (occurrence: US)
  Receive Date: 20230921
  Receipt Date: 20231227
  Transmission Date: 20240109
  Serious: Yes (Hospitalization, Other)
  Sender: FDA-Public Use
  Company Number: US-BRISTOL-MYERS SQUIBB COMPANY-2023-134472

PATIENT
  Age: 75 Year
  Sex: Male

DRUGS (5)
  1. REVLIMID [Suspect]
     Active Substance: LENALIDOMIDE
     Indication: Amyloidosis
     Route: 048
     Dates: start: 20230531
  2. REVLIMID [Suspect]
     Active Substance: LENALIDOMIDE
     Indication: Light chain disease
     Route: 048
     Dates: start: 202306, end: 20230828
  3. REVLIMID [Suspect]
     Active Substance: LENALIDOMIDE
     Route: 048
     Dates: start: 20230911, end: 20230927
  4. REVLIMID [Suspect]
     Active Substance: LENALIDOMIDE
     Route: 048
     Dates: start: 20231210
  5. NYSTATIN [Concomitant]
     Active Substance: NYSTATIN
     Indication: Product used for unknown indication

REACTIONS (7)
  - Gout [Recovered/Resolved]
  - Off label use [Unknown]
  - Haemoglobin decreased [Recovered/Resolved]
  - Myalgia [Recovered/Resolved]
  - Febrile neutropenia [Recovered/Resolved]
  - Hypovolaemia [Recovered/Resolved]
  - Neuropathy peripheral [Recovered/Resolved]

NARRATIVE: CASE EVENT DATE: 20230801
